FAERS Safety Report 12647065 (Version 1)
Quarter: 2016Q3

REPORT INFORMATION
  Report Type: Spontaneous
  Country: US (occurrence: US)
  Receive Date: 20160812
  Receipt Date: 20160812
  Transmission Date: 20161109
  Serious: No
  Sender: FDA-Public Use
  Company Number: US-BAYER-2016-155272

PATIENT
  Sex: Female

DRUGS (2)
  1. PHILLIPS^ CHEWABLE TABLETS MINT [Suspect]
     Active Substance: MAGNESIUM HYDROXIDE
     Dosage: 8-10 DF, QD
     Route: 048
  2. MIRALAX [Suspect]
     Active Substance: POLYETHYLENE GLYCOL 3350

REACTIONS (2)
  - Drug ineffective [None]
  - Product use issue [None]
